FAERS Safety Report 7484968-5 (Version None)
Quarter: 2011Q2

REPORT INFORMATION
  Report Type: 
  Country: None (occurrence: None)
  Receive Date: 20110517
  Receipt Date: 20101004
  Transmission Date: 20111010
  Serious: No
  Sender: FDA-Public Use
  Company Number: US-BAYER-201022134BCC

PATIENT
  Age: 2 Year
  Sex: Female
  Weight: 11.818 kg

DRUGS (3)
  1. ADVIL LIQUI-GELS [Suspect]
     Dosage: 2 DF, UNK
     Route: 048
     Dates: start: 20101001, end: 20101001
  2. NAPROXEN (ALEVE) [Suspect]
     Dosage: 2 DF, UNK
     Route: 048
     Dates: start: 20101001, end: 20101001
  3. MULTI-VITAMIN [Concomitant]

REACTIONS (1)
  - NO ADVERSE EVENT [None]
